FAERS Safety Report 11541909 (Version 2)
Quarter: 2016Q4

REPORT INFORMATION
  Report Type: Spontaneous
  Country: US (occurrence: US)
  Receive Date: 20150903
  Receipt Date: 20161123
  Transmission Date: 20170206
  Serious: No
  Sender: FDA-Public Use
  Company Number: US-ELI_LILLY_AND_COMPANY-US201104005861

PATIENT
  Sex: Male

DRUGS (5)
  1. LANTUS [Concomitant]
     Active Substance: INSULIN GLARGINE
     Dosage: 5 U, EACH EVENING
     Route: 058
     Dates: end: 201611
  2. LANTUS [Concomitant]
     Active Substance: INSULIN GLARGINE
     Indication: TYPE 2 DIABETES MELLITUS
     Dosage: 5 U, EACH EVENING
     Route: 058
     Dates: start: 201012
  3. HUMALOG [Suspect]
     Active Substance: INSULIN LISPRO
     Dosage: 5 U, QID
     Route: 065
     Dates: start: 2010, end: 20161114
  4. HUMALOG [Suspect]
     Active Substance: INSULIN LISPRO
     Indication: TYPE 2 DIABETES MELLITUS
     Dosage: 5 U, TID
     Route: 065
     Dates: start: 201012, end: 20110817
  5. NOVOLOG [Concomitant]
     Active Substance: INSULIN ASPART

REACTIONS (17)
  - Diarrhoea [Not Recovered/Not Resolved]
  - Nausea [Unknown]
  - Limb injury [Recovering/Resolving]
  - Metabolic disorder [Unknown]
  - Regurgitation [Not Recovered/Not Resolved]
  - Faeces pale [Unknown]
  - Impaired gastric emptying [Not Recovered/Not Resolved]
  - Eructation [Not Recovered/Not Resolved]
  - Flatulence [Unknown]
  - Abnormal faeces [Unknown]
  - Dyspepsia [Unknown]
  - Eating disorder [Not Recovered/Not Resolved]
  - Abdominal pain upper [Not Recovered/Not Resolved]
  - Constipation [Unknown]
  - Drug dose omission [Unknown]
  - Abdominal distension [Unknown]
  - Throat irritation [Not Recovered/Not Resolved]

NARRATIVE: CASE EVENT DATE: 2010
